FAERS Safety Report 6983826-X (Version None)
Quarter: 2010Q3

REPORT INFORMATION
  Report Type: 
  Country: None (occurrence: None)
  Receive Date: 20100914
  Receipt Date: 20090224
  Transmission Date: 20110219
  Serious: No
  Sender: FDA-Public Use
  Company Number: US-WYE-H08357609

PATIENT
  Age: 69 Year
  Sex: Female
  Weight: 52.21 kg

DRUGS (6)
  1. ADVIL LIQUI-GELS [Suspect]
     Indication: BACK PAIN
     Route: 048
     Dates: start: 20090201, end: 20090223
  2. VITAMIN D [Concomitant]
  3. METOPROLOL TARTRATE [Concomitant]
  4. NORVASC [Concomitant]
  5. NEXIUM [Concomitant]
  6. SYNTHROID [Concomitant]

REACTIONS (4)
  - CRYING [None]
  - EMOTIONAL DISORDER [None]
  - FEELING ABNORMAL [None]
  - TREMOR [None]
